FAERS Safety Report 11165715 (Version 1)
Quarter: 2015Q2

REPORT INFORMATION
  Report Type: Spontaneous
  Country: US (occurrence: None)
  Receive Date: 20150603
  Receipt Date: 20150603
  Transmission Date: 20150821
  Serious: Yes (Disabling, Other)
  Sender: FDA-Public Use
  Company Number: None

PATIENT
  Age: 45 Year
  Sex: Male
  Weight: 92.99 kg

DRUGS (1)
  1. METHYLPREDNISOLONE. [Suspect]
     Active Substance: METHYLPREDNISOLONE
     Indication: EPICONDYLITIS
     Dosage: DOSEPAK; TAPERED DOSE
     Route: 048
     Dates: start: 20150126, end: 20150131

REACTIONS (4)
  - Illogical thinking [None]
  - Anxiety [None]
  - Stress [None]
  - Loss of employment [None]

NARRATIVE: CASE EVENT DATE: 20150130
